FAERS Safety Report 5297308-7 (Version None)
Quarter: 2007Q2

REPORT INFORMATION
  Report Type: 
  Country: None (occurrence: None)
  Receive Date: 20070409
  Receipt Date: 20070323
  Transmission Date: 20071010
  Serious: Yes (Hospitalization)
  Sender: FDA-Public Use
  Company Number: MEDI-0005585

PATIENT
  Age: 3 Month
  Sex: Female
  Weight: 6.6 kg

DRUGS (1)
  1. SYNAGIS [Suspect]
     Indication: ANTIVIRAL PROPHYLAXIS
     Dates: start: 20061031, end: 20061031

REACTIONS (2)
  - BRONCHIOLITIS [None]
  - HYPONATRAEMIA [None]
